FAERS Safety Report 6165343-2 (Version None)
Quarter: 2009Q2

REPORT INFORMATION
  Report Type: 
  Country: None (occurrence: None)
  Receive Date: 20090421
  Receipt Date: 20090421
  Transmission Date: 20091009
  Serious: No
  Sender: FDA-Public Use
  Company Number: None

PATIENT
  Age: 75 Year
  Sex: Male
  Weight: 80.7403 kg

DRUGS (1)
  1. CIALIS [Suspect]
     Indication: ERECTILE DYSFUNCTION
     Dosage: ONE PILL APPROX 2 @ MONTH 18 MONTHS -APPROX-
     Dates: start: 20061215, end: 20080715

REACTIONS (2)
  - SUDDEN HEARING LOSS [None]
  - TINNITUS [None]
